FAERS Safety Report 11198914 (Version 3)
Quarter: 2015Q3

REPORT INFORMATION
  Report Type: Other
  Country: IT (occurrence: IT)
  Receive Date: 20150618
  Receipt Date: 20150708
  Transmission Date: 20151125
  Serious: Yes (Other)
  Sender: FDA-Public Use
  Company Number: IT-SUN PHARMACEUTICAL INDUSTRIES LTD-2014SUN00157

PATIENT

DRUGS (9)
  1. 1-(U-D-5^-DEOSSIRIBOFURANOSIL)-5-FLUOROURACILE [Suspect]
     Active Substance: FLUOROURACIL
     Dosage: 4320 MG, CYCLICAL
     Route: 041
     Dates: start: 20130925, end: 20140324
  2. 1-(U-D-5^-DEOSSIRIBOFURANOSIL)-5-FLUOROURACILE [Suspect]
     Active Substance: FLUOROURACIL
     Indication: RECTAL ADENOCARCINOMA
     Dosage: 720 MG CYCLIC
     Route: 042
     Dates: start: 20130925, end: 20140324
  3. LIMPIDEX [Concomitant]
     Active Substance: LANSOPRAZOLE
  4. OXALIPLATIN. [Suspect]
     Active Substance: OXALIPLATIN
     Indication: RECTAL ADENOCARCINOMA
     Dosage: 150 MG, CYCLICAL
     Route: 042
     Dates: start: 20130925, end: 20140324
  5. CRESTOR [Concomitant]
     Active Substance: ROSUVASTATIN CALCIUM
  6. CARDICOR [Concomitant]
     Active Substance: BISOPROLOL
  7. COAPROVEL [Concomitant]
     Active Substance: HYDROCHLOROTHIAZIDE\IRBESARTAN
  8. LEDERFOLIN [Concomitant]
     Active Substance: LEUCOVORIN CALCIUM
     Dosage: 360 MG, UNK
     Dates: start: 20130925, end: 20140324
  9. CARDIOASPIRIN [Concomitant]
     Active Substance: ASPIRIN

REACTIONS (4)
  - Neutropenia [Recovering/Resolving]
  - Paraesthesia [Recovering/Resolving]
  - Thrombocytopenia [Recovering/Resolving]
  - Hyposideraemia [Recovering/Resolving]

NARRATIVE: CASE EVENT DATE: 20131014
